FAERS Safety Report 7485083-7 (Version None)
Quarter: 2011Q2

REPORT INFORMATION
  Report Type: 
  Country: None (occurrence: None)
  Receive Date: 20110517
  Receipt Date: 20101112
  Transmission Date: 20111010
  Serious: No
  Sender: FDA-Public Use
  Company Number: US-BAYER-2010-004475

PATIENT
  Sex: Female

DRUGS (2)
  1. ALEVE (CAPLET) [Suspect]
     Indication: PYREXIA
  2. ALEVE (CAPLET) [Suspect]
     Indication: ANALGESIC THERAPY

REACTIONS (1)
  - PAIN [None]
